FAERS Safety Report 8536978-4 (Version None)
Quarter: 2012Q3

REPORT INFORMATION
  Report Type: 
  Country: None (occurrence: None)
  Receive Date: 20120725
  Receipt Date: 20120723
  Transmission Date: 20120928
  Serious: Yes (Death, Hospitalization)
  Sender: FDA-Public Use
  Company Number: US-BAYER-201021798NA

PATIENT
  Age: 58 Year
  Sex: Female
  Weight: 89.545 kg

DRUGS (31)
  1. SORAFENIB (RAF KINASE INHIBITOR) [Suspect]
     Dosage: 400 MG, BID
     Route: 048
     Dates: start: 20100208, end: 20100311
  2. SORAFENIB (RAF KINASE INHIBITOR) [Suspect]
     Dosage: CYCLE 10 - AS USED DOES: 400-200 MG
     Route: 048
     Dates: start: 20100921
  3. AMBIEN [Concomitant]
     Indication: INSOMNIA
     Dosage: 10-15 MG
     Route: 048
     Dates: start: 19990101
  4. HYZAAR [Concomitant]
     Indication: HYPERTENSION
     Dosage: 1 TABLET DAILY - AS USED DOSE: 100-25 MG
     Route: 048
     Dates: start: 19990101, end: 20100505
  5. VITAMIN D [Concomitant]
     Indication: SUPPLEMENTATION THERAPY
     Route: 048
     Dates: start: 20080101
  6. SORAFENIB (RAF KINASE INHIBITOR) [Suspect]
     Dosage: 400 MG, BID
     Route: 048
     Dates: start: 20100115, end: 20100208
  7. PREDNISONE [Concomitant]
     Indication: IRITIS
     Route: 048
     Dates: start: 20000101
  8. LISINOPRIL [Concomitant]
     Dosage: 2.5 MG, QD
  9. SORAFENIB (RAF KINASE INHIBITOR) [Suspect]
     Dosage: CYCLE 9 - AS USED DOSE: 400-200 MG
     Route: 048
     Dates: start: 20100805, end: 20100901
  10. SORAFENIB (RAF KINASE INHIBITOR) [Suspect]
     Dosage: CYCLE 10-DUE TO SUBJECT ERROR
     Route: 048
  11. PROCARDIA XL [Concomitant]
     Indication: HYPERTENSION
     Dosage: 60 MG, QD
     Route: 048
     Dates: start: 20050101, end: 20100204
  12. VALIUM [Concomitant]
     Indication: MUSCLE RELAXANT THERAPY
     Dosage: 5 MG, QD
     Route: 048
     Dates: start: 20090101, end: 20090515
  13. SODIUM CHLORIDE [Concomitant]
     Indication: MIGRAINE
     Dosage: 500 ML, UNK
     Dates: start: 20101208
  14. SORAFENIB (RAF KINASE INHIBITOR) [Suspect]
     Indication: THYROID CANCER METASTATIC
     Dosage: 400 MG, BID
     Route: 048
     Dates: start: 20091217, end: 20100115
  15. SORAFENIB (RAF KINASE INHIBITOR) [Suspect]
     Dosage: 400 MG, BID
     Route: 048
     Dates: start: 20100311, end: 20100408
  16. SYNTHROID [Concomitant]
     Indication: HYPOTHYROIDISM
     Route: 048
     Dates: start: 20070601
  17. SORAFENIB (RAF KINASE INHIBITOR) [Suspect]
     Dosage: CYCLE 8 - AS USED DOSE: 400-200 MG
     Route: 048
     Dates: start: 20100803, end: 20100805
  18. FIORICET W/ CODEINE [Concomitant]
     Indication: MIGRAINE
     Dosage: 1 TABLET 6-7 X DAILY
     Route: 048
     Dates: start: 19800101, end: 20100416
  19. LORAZEPAM [Concomitant]
     Indication: ANXIETY
     Dosage: ONCE A MONTH FOR CT SCAN
     Route: 048
     Dates: start: 20090101
  20. DILAUDID [Concomitant]
     Indication: PAIN
     Dosage: 1 MG Q4HR, PRN
  21. ATIVAN [Concomitant]
     Indication: ANXIETY
     Dosage: 1 MG Q4HR, PRN
  22. SORAFENIB (RAF KINASE INHIBITOR) [Suspect]
     Dosage: 400 MG, BID
     Route: 048
     Dates: start: 20100408, end: 20100413
  23. SORAFENIB (RAF KINASE INHIBITOR) [Suspect]
     Dosage: 400 MG, BID
     Route: 048
     Dates: start: 20100521, end: 20100623
  24. CALCIUM CARBONATE [Concomitant]
     Indication: HYPOCALCAEMIA
     Dosage: DAILY DOSE 500 MG
     Dates: start: 20100411
  25. PRISTIQ [Concomitant]
     Indication: DEPRESSION
     Route: 048
     Dates: start: 20090101
  26. LOMOTIL [DIPHENOXYLATE HYDROCHLORIDE] [Concomitant]
     Indication: DIARRHOEA
     Route: 048
     Dates: start: 20100224, end: 20100224
  27. TRAZODONE HYDROCHLORIDE [Concomitant]
     Indication: INSOMNIA
     Dosage: 150MG BEDTIME AND 75MG MORNING
     Dates: start: 20100705
  28. SORAFENIB (RAF KINASE INHIBITOR) [Suspect]
     Dosage: CYCLE 12 : 400+200 MG QD
     Route: 048
     Dates: start: 20100923, end: 20100101
  29. PROCARDIA XL [Concomitant]
     Route: 048
     Dates: start: 20100204, end: 20100505
  30. FIORINAL W/CODEINE [Concomitant]
     Indication: MIGRAINE
     Route: 048
     Dates: start: 20100416
  31. SODIUM CHLORIDE [Concomitant]
     Dosage: 1 L, UNK
     Dates: start: 20100901, end: 20100903

REACTIONS (3)
  - MIGRAINE [None]
  - MITRAL VALVE INCOMPETENCE [None]
  - RESPIRATORY FAILURE [None]
